FAERS Safety Report 5362310-3 (Version None)
Quarter: 2007Q2

REPORT INFORMATION
  Report Type: 
  Country: None (occurrence: None)
  Receive Date: 20070619
  Receipt Date: 20070608
  Transmission Date: 20071010
  Serious: Yes (Other)
  Sender: FDA-Public Use
  Company Number: B0474624A

PATIENT
  Age: 60 Year
  Sex: Male

DRUGS (4)
  1. AVANDAMET [Suspect]
     Indication: DIABETES MELLITUS NON-INSULIN-DEPENDENT
     Dosage: 2TAB PER DAY
     Route: 048
     Dates: start: 20060301
  2. BETA BLOCKER [Concomitant]
     Route: 065
  3. ZOCOR [Concomitant]
     Route: 065
  4. LOSARTAN POTASSIUM AND HYDROCHLOROTHIAZIDE [Concomitant]
     Route: 065

REACTIONS (2)
  - ANAEMIA [None]
  - MEAN CELL VOLUME INCREASED [None]
